FAERS Safety Report 4707872-1 (Version None)
Quarter: 2005Q2

REPORT INFORMATION
  Report Type: 
  Country: None (occurrence: None)
  Receive Date: 20050629
  Receipt Date: 20050317
  Transmission Date: 20051028
  Serious: No
  Sender: FDA-Public Use
  Company Number: 05P-163-0294365-00

PATIENT
  Age: 49 Year
  Sex: Female
  Weight: 68.0396 kg

DRUGS (5)
  1. HUMIRA [Suspect]
     Indication: RHEUMATOID ARTHRITIS
     Dosage: 40 MG, 1IN 2 WK, SUBCUTANEOUS
     Route: 058
     Dates: start: 20030701
  2. BUCINDOLOL HYDROCHLORIDE [Concomitant]
  3. ATORVASTATIN CALCIUM [Concomitant]
  4. ATENOLOL [Concomitant]
  5. RABEPRAZOLE SODIUM [Concomitant]

REACTIONS (2)
  - CHILLS [None]
  - RASH PRURITIC [None]
